FAERS Safety Report 7148745-7 (Version None)
Quarter: 2010Q4

REPORT INFORMATION
  Report Type: 
  Country: None (occurrence: None)
  Receive Date: 20101124
  Receipt Date: 20101109
  Transmission Date: 20110411
  Serious: Yes (Other)
  Sender: FDA-Public Use
  Company Number: IPC201011-000299

PATIENT
  Sex: Female

DRUGS (5)
  1. METOCLOPRAMIDE HYDROCHLORIDE [Suspect]
     Dosage: 10 MG
     Dates: start: 20040601, end: 20100601
  2. METOCLOPRAMIDE [Suspect]
     Dosage: 05 MG 5 MG
     Dates: start: 20040601, end: 20100601
  3. METOCLOPRAMIDE [Suspect]
     Dosage: 10 MG
     Dates: start: 20040601, end: 20100601
  4. METOCLOPRAMIDE [Suspect]
     Dosage: 10 MG
     Dates: start: 20040601, end: 20100601
  5. METOCLOPRAMIDE [Suspect]
     Dates: start: 20040601, end: 20100601

REACTIONS (3)
  - DRUG TOXICITY [None]
  - DYSKINESIA [None]
  - RESTLESS LEGS SYNDROME [None]
